FAERS Safety Report 4694558-5 (Version None)
Quarter: 2005Q2

REPORT INFORMATION
  Report Type: 
  Country: None (occurrence: None)
  Receive Date: 20050620
  Receipt Date: 20050606
  Transmission Date: 20051028
  Serious: Yes (Other)
  Sender: FDA-Public Use
  Company Number: GB-MERCK-0506GBR00106

PATIENT
  Sex: Male

DRUGS (2)
  1. VIOXX [Suspect]
     Route: 048
     Dates: start: 19991201, end: 20000801
  2. VIOXX [Suspect]
     Route: 048
     Dates: start: 20020501, end: 20040801

REACTIONS (1)
  - MYOCARDIAL INFARCTION [None]
